FAERS Safety Report 12538328 (Version 1)
Quarter: 2016Q3

REPORT INFORMATION
  Report Type: Spontaneous
  Country: US (occurrence: US)
  Receive Date: 20160707
  Receipt Date: 20160707
  Transmission Date: 20161109
  Serious: Yes (Other)
  Sender: FDA-Public Use
  Company Number: US-HQ SPECIALTY-US-2016INT000486

PATIENT
  Age: 80 Year
  Sex: Female

DRUGS (1)
  1. METHOTREXATE SODIUM. [Suspect]
     Active Substance: METHOTREXATE SODIUM
     Indication: RHEUMATOID ARTHRITIS
     Dosage: 2.5 MG, 4 IN 1 D
     Route: 048

REACTIONS (7)
  - Drug dispensing error [Unknown]
  - Dyspnoea [Recovered/Resolved]
  - Accidental overdose [Unknown]
  - Peripheral swelling [Recovered/Resolved]
  - Thrombocytopenia [Recovered/Resolved]
  - Inappropriate schedule of drug administration [Unknown]
  - Fatigue [Recovered/Resolved]
